FAERS Safety Report 5808326-1 (Version None)
Quarter: 2008Q3

REPORT INFORMATION
  Report Type: 
  Country: None (occurrence: None)
  Receive Date: 20080709
  Receipt Date: 20080701
  Transmission Date: 20090109
  Serious: Yes (Hospitalization)
  Sender: FDA-Public Use
  Company Number: 2008005335

PATIENT
  Age: 27 Year
  Sex: Male

DRUGS (2)
  1. MINOXIDIL [Suspect]
     Dosage: UNSPECIFIED, TOPICAL
     Route: 061
     Dates: start: 20061001
  2. AZATHIOPRINE [Concomitant]

REACTIONS (6)
  - GASTROENTERITIS [None]
  - IDIOPATHIC THROMBOCYTOPENIC PURPURA [None]
  - MOUTH HAEMORRHAGE [None]
  - MUCOSAL DISCOLOURATION [None]
  - OEDEMA MUCOSAL [None]
  - PETECHIAE [None]
